FAERS Safety Report 24536253 (Version 1)
Quarter: 2024Q4

REPORT INFORMATION
  Report Type: Report from Study
  Country: US (occurrence: US)
  Receive Date: 20241022
  Receipt Date: 20241022
  Transmission Date: 20250114
  Serious: Yes (Other)
  Sender: JAZZ
  Company Number: US-JAZZ PHARMACEUTICALS-2024-US-015687

PATIENT
  Sex: Female

DRUGS (4)
  1. XYWAV [Suspect]
     Active Substance: CALCIUM OXYBATE\MAGNESIUM OXYBATE\POTASSIUM OXYBATE\SODIUM OXYBATE
     Indication: Hypersomnia
     Dosage: UNK
  2. MIRALAX [Concomitant]
     Active Substance: POLYETHYLENE GLYCOL 3350
     Dosage: 0000
     Dates: start: 20230508
  3. COLACE [Concomitant]
     Active Substance: DOCUSATE SODIUM
     Dosage: 0000
     Dates: start: 20230507
  4. ALEVE [Concomitant]
     Active Substance: NAPROXEN SODIUM
     Dosage: 0000
     Dates: start: 20230508

REACTIONS (2)
  - Polycystic ovarian syndrome [Unknown]
  - Exposure during pregnancy [Unknown]
